FAERS Safety Report 5132505-2 (Version None)
Quarter: 2006Q4

REPORT INFORMATION
  Report Type: 
  Country: None (occurrence: None)
  Receive Date: 20061017
  Receipt Date: 20061002
  Transmission Date: 20070319
  Serious: Yes (Hospitalization, Other)
  Sender: FDA-Public Use
  Company Number: US200605006342

PATIENT
  Age: 65 Year
  Sex: Female
  Weight: 60.3 kg

DRUGS (3)
  1. FORTEO [Suspect]
     Dates: start: 20050401
  2. FORTEO [Concomitant]
  3. ZIAC [Concomitant]

REACTIONS (4)
  - COLONIC POLYP [None]
  - DIVERTICULUM INTESTINAL HAEMORRHAGIC [None]
  - PAIN [None]
  - PHARMACEUTICAL PRODUCT COMPLAINT [None]
